FAERS Safety Report 18254098 (Version 9)
Quarter: 2021Q3

REPORT INFORMATION
  Report Type: Spontaneous
  Country: JP (occurrence: JP)
  Receive Date: 20200910
  Receipt Date: 20210916
  Transmission Date: 20211014
  Serious: Yes (Other)
  Sender: FDA-Public Use
  Company Number: JP-JNJFOC-20200901401

PATIENT
  Age: 55 Year
  Sex: Female
  Weight: 64.8 kg

DRUGS (4)
  1. NEOPERIDOL [Suspect]
     Active Substance: HALOPERIDOL
     Indication: SCHIZOPHRENIA
     Dosage: RIGHT UPPER ARM, NEOPERIDOL
     Route: 030
     Dates: start: 20200827, end: 20200827
  2. NEOPERIDOL [Suspect]
     Active Substance: HALOPERIDOL
     Indication: SCHIZOPHRENIA
     Dosage: GLUTEAL MUSCLE, NEOPERIDOL
     Route: 030
     Dates: start: 20201001, end: 2021
  3. NEOPERIDOL [Suspect]
     Active Substance: HALOPERIDOL
     Indication: SCHIZOPHRENIA
     Dosage: RIGHT UPPER ARM OR LEFT UPPER ARM PER 4 WEEKS, NEOPERIDOL
     Route: 030
     Dates: start: 20190507, end: 2020
  4. HIRNAMIN [LEVOMEPROMAZINE] [Concomitant]
     Active Substance: LEVOMEPROMAZINE
     Indication: SCHIZOPHRENIA
     Route: 048
     Dates: start: 20040517

REACTIONS (2)
  - Administration site pain [Recovering/Resolving]
  - Paralysis [Recovered/Resolved with Sequelae]

NARRATIVE: CASE EVENT DATE: 20200827
